FAERS Safety Report 8761552 (Version 2)
Quarter: 2012Q4

REPORT INFORMATION
  Report Type: Spontaneous
  Country: BR (occurrence: None)
  Receive Date: 20120810
  Receipt Date: 20120823
  Transmission Date: 20130627
  Serious: Yes (Hospitalization)
  Sender: FDA-Public Use
  Company Number: 0230869

PATIENT

DRUGS (1)
  1. TACHOSIL [Suspect]
     Indication: THERAPEUTIC PROCEDURE
     Dosage: 1 Dosage forms
     Route: 061

REACTIONS (1)
  - Bronchospasm [None]
